FAERS Safety Report 16161874 (Version 1)
Quarter: 2019Q2

REPORT INFORMATION
  Report Type: Spontaneous
  Country: JP (occurrence: JP)
  Receive Date: 20190405
  Receipt Date: 20190405
  Transmission Date: 20190711
  Serious: Yes (Other)
  Sender: FDA-Public Use
  Company Number: JP-ABBVIE-19P-087-2733178-00

PATIENT
  Sex: Male

DRUGS (1)
  1. LEUPLIN [Suspect]
     Active Substance: LEUPROLIDE ACETATE
     Indication: PROSTATE CANCER RECURRENT
     Dosage: UNK UNK, Q4WEEKS
     Route: 058

REACTIONS (3)
  - Product prescribing error [Unknown]
  - Inappropriate schedule of product administration [Unknown]
  - Interstitial lung disease [Unknown]
